FAERS Safety Report 6196087-9 (Version None)
Quarter: 2009Q2

REPORT INFORMATION
  Report Type: 
  Country: None (occurrence: None)
  Receive Date: 20090514
  Receipt Date: 20090506
  Transmission Date: 20091009
  Serious: Yes (Life-Threatening)
  Sender: FDA-Public Use
  Company Number: AECAN200900149

PATIENT
  Age: 51 Year
  Sex: Male
  Weight: 90 kg

DRUGS (5)
  1. IMMUNE GLOBULIN INTRAVENOUS (HUMAN) [Suspect]
     Indication: ANAEMIA HAEMOLYTIC AUTOIMMUNE
     Dosage: 180 GM; TOTAL; IV
     Route: 042
     Dates: start: 20090414, end: 20090417
  2. IMMUNE GLOBULIN INTRAVENOUS (HUMAN) [Suspect]
  3. METHYLPREDNISOLONE [Concomitant]
  4. MEROPENEM [Concomitant]
  5. VANCOMYCIN HCL [Concomitant]

REACTIONS (2)
  - CONDITION AGGRAVATED [None]
  - WARM TYPE HAEMOLYTIC ANAEMIA [None]
